FAERS Safety Report 17193373 (Version 2)
Quarter: 2020Q1

REPORT INFORMATION
  Report Type: Spontaneous
  Country: US (occurrence: US)
  Receive Date: 20191223
  Receipt Date: 20200228
  Transmission Date: 20200409
  Serious: Yes (Hospitalization, Other)
  Sender: FDA-Public Use
  Company Number: US-ACTELION-A-NJ2019-199557

PATIENT
  Age: 5 Month
  Sex: Female

DRUGS (4)
  1. NITROUS OXIDE. [Concomitant]
     Active Substance: NITROUS OXIDE
     Dosage: 3 PPM
     Dates: start: 20191104, end: 20191226
  2. TRACLEER [Suspect]
     Active Substance: BOSENTAN
     Indication: PULMONARY ARTERIAL HYPERTENSION
     Dosage: 4 MG, Q12HRS
     Route: 048
     Dates: start: 20191121, end: 20191216
  3. FLOLAN [Concomitant]
     Active Substance: EPOPROSTENOL SODIUM
     Dosage: 11 MCG/KG, PER MIN
     Dates: start: 20191031, end: 20191230
  4. SILDENAFIL. [Concomitant]
     Active Substance: SILDENAFIL
     Dosage: 4 MG, Q8 HRS
     Route: 048

REACTIONS (5)
  - Alanine aminotransferase increased [Unknown]
  - Liver function test increased [Unknown]
  - Transaminases increased [Unknown]
  - Aspartate aminotransferase increased [Unknown]
  - Product use issue [Unknown]

NARRATIVE: CASE EVENT DATE: 20191216
